FAERS Safety Report 10946817 (Version 2)
Quarter: 2015Q2

REPORT INFORMATION
  Report Type: Spontaneous
  Country: US (occurrence: US)
  Receive Date: 20150323
  Receipt Date: 20150518
  Transmission Date: 20150821
  Serious: No
  Sender: FDA-Public Use
  Company Number: US-PFIZER INC-2015098418

PATIENT
  Age: 72 Year
  Sex: Female
  Weight: 59 kg

DRUGS (3)
  1. ZANTAC [Concomitant]
     Active Substance: RANITIDINE HYDROCHLORIDE
     Indication: ABDOMINAL PAIN UPPER
     Dosage: 150 MG, DAILY
     Route: 048
  2. VERAPAMIL HCL [Suspect]
     Active Substance: VERAPAMIL HYDROCHLORIDE
     Dosage: 0.5 DF, UNK
     Dates: start: 2014
  3. VERAPAMIL HCL [Suspect]
     Active Substance: VERAPAMIL HYDROCHLORIDE
     Indication: LYMPHANGIOLEIOMYOMATOSIS
     Dosage: 2 MG, DAILY
     Route: 048
     Dates: start: 201308

REACTIONS (4)
  - Asthma [Unknown]
  - Feeling abnormal [Unknown]
  - Product use issue [Unknown]
  - Headache [Not Recovered/Not Resolved]

NARRATIVE: CASE EVENT DATE: 201308
